FAERS Safety Report 5981957-4 (Version None)
Quarter: 2008Q4

REPORT INFORMATION
  Report Type: 
  Country: None (occurrence: None)
  Receive Date: 20081202
  Receipt Date: 20081117
  Transmission Date: 20090506
  Serious: Yes (Death)
  Sender: FDA-Public Use
  Company Number: KV200800273

PATIENT
  Age: 90 Year
  Sex: Male
  Weight: 87.1 kg

DRUGS (1)
  1. ISOSORBIDE MONONITRATE (ISOSORBIDE MONONITRATE) SLOW RELEASE TABLET, 6 [Suspect]
     Indication: HYPERTENSION
     Dosage: 60 MG, QD, ORAL
     Route: 048
     Dates: start: 20070901, end: 20080901

REACTIONS (2)
  - CHRONIC OBSTRUCTIVE PULMONARY DISEASE [None]
  - DISEASE PROGRESSION [None]
